FAERS Safety Report 10726075 (Version 1)
Quarter: 2015Q1

REPORT INFORMATION
  Report Type: Spontaneous
  Country: FI (occurrence: None)
  Receive Date: 20150116
  Receipt Date: 20150116
  Transmission Date: 20150721
  Serious: Yes (Hospitalization)
  Sender: FDA-Public Use
  Company Number: 2698015

PATIENT
  Age: 58 Year
  Sex: Female

DRUGS (2)
  1. CAPECITABINUM [Concomitant]
  2. OXALIPLATIN. [Suspect]
     Active Substance: OXALIPLATIN
     Indication: GASTROINTESTINAL CARCINOMA
     Dosage: 220 MG MILLIGRAM(S), 1 WEEK, INTRAVENOUS DRIP
     Route: 041
     Dates: start: 20140826, end: 20140917

REACTIONS (7)
  - Palpitations [None]
  - Erythema [None]
  - Respiratory rate increased [None]
  - Pallor [None]
  - Dyspnoea [None]
  - Tachycardia [None]
  - Asthenia [None]

NARRATIVE: CASE EVENT DATE: 20140917
